FAERS Safety Report 6051437-9 (Version None)
Quarter: 2009Q1

REPORT INFORMATION
  Report Type: 
  Country: None (occurrence: None)
  Receive Date: 20090126
  Receipt Date: 20090116
  Transmission Date: 20090719
  Serious: Yes (Death, Hospitalization, Other)
  Sender: FDA-Public Use
  Company Number: US-AMGEN-US321087

PATIENT
  Sex: Male

DRUGS (9)
  1. NPLATE [Suspect]
     Indication: IDIOPATHIC THROMBOCYTOPENIC PURPURA
     Dates: start: 20080926, end: 20081024
  2. ATENOLOL [Concomitant]
     Dates: start: 20081003
  3. LIPITOR [Concomitant]
  4. SENNA [Concomitant]
  5. GLUCOTROL [Concomitant]
  6. GLUCOPHAGE [Concomitant]
     Dates: end: 20081017
  7. PREDNISONE TAB [Concomitant]
     Dates: start: 20081016, end: 20081023
  8. LISINOPRIL [Concomitant]
     Dates: end: 20081003
  9. DYAZIDE [Concomitant]
     Dates: end: 20081017

REACTIONS (4)
  - BLOOD BLISTER [None]
  - EPISTAXIS [None]
  - MYOCARDIAL INFARCTION [None]
  - PLATELET COUNT DECREASED [None]
